FAERS Safety Report 10338077 (Version 2)
Quarter: 2015Q1

REPORT INFORMATION
  Report Type: Report from Study
  Country: CA (occurrence: CA)
  Receive Date: 20140724
  Receipt Date: 20150115
  Transmission Date: 20150720
  Serious: Yes (Other)
  Sender: FDA-Public Use
  Company Number: CA-JNJFOC-20140712084

PATIENT
  Age: 39 Year
  Sex: Male
  Weight: 95 kg

DRUGS (10)
  1. REMICADE [Suspect]
     Active Substance: INFLIXIMAB
     Indication: PSORIASIS
     Dosage: INFUSION#7
     Route: 042
     Dates: start: 20140717, end: 20140717
  2. TYLENOL [Concomitant]
     Active Substance: ACETAMINOPHEN
     Indication: PREMEDICATION
     Route: 048
     Dates: start: 20140717
  3. REMICADE [Suspect]
     Active Substance: INFLIXIMAB
     Indication: PSORIASIS
     Route: 042
     Dates: start: 20140131
  4. FOLIC ACID. [Concomitant]
     Active Substance: FOLIC ACID
     Indication: PSORIATIC ARTHROPATHY
     Dosage: BIW
     Route: 065
  5. METHOTREXATE [Concomitant]
     Active Substance: METHOTREXATE
     Indication: PSORIATIC ARTHROPATHY
     Dosage: QW
     Route: 065
  6. BENADRYL [Concomitant]
     Active Substance: DIPHENHYDRAMINE HYDROCHLORIDE
     Indication: PREMEDICATION
     Route: 042
     Dates: start: 20140717
  7. HCTZ [Concomitant]
     Active Substance: HYDROCHLOROTHIAZIDE
     Indication: HYPERTENSION
     Route: 065
  8. SOLU-CORTEF [Concomitant]
     Active Substance: HYDROCORTISONE SODIUM SUCCINATE
     Indication: PREMEDICATION
     Route: 042
     Dates: start: 20140717
  9. PREDNISONE. [Concomitant]
     Active Substance: PREDNISONE
     Indication: PSORIATIC ARTHROPATHY
     Dosage: BIW
     Route: 065
  10. ATENOLOL. [Concomitant]
     Active Substance: ATENOLOL
     Indication: HYPERTENSION
     Route: 065

REACTIONS (4)
  - Hypotension [Recovered/Resolved]
  - Oxygen saturation decreased [Recovered/Resolved]
  - Infusion related reaction [Recovered/Resolved]
  - Confusional state [Recovered/Resolved]

NARRATIVE: CASE EVENT DATE: 20140717
